FAERS Safety Report 9315847 (Version 2)
Quarter: 2013Q4

REPORT INFORMATION
  Report Type: Report from Study
  Country: US (occurrence: US)
  Receive Date: 20130529
  Receipt Date: 20131106
  Transmission Date: 20140711
  Serious: Yes (Hospitalization)
  Sender: FDA-Public Use
  Company Number: US-BRISTOL-MYERS SQUIBB COMPANY-18916999

PATIENT
  Age: 62 Year
  Sex: Female
  Weight: 82.9 kg

DRUGS (8)
  1. NIVOLUMAB [Suspect]
     Indication: METASTATIC RENAL CELL CARCINOMA
     Dosage: THRICE IN A WEEK X 4DOSES?16MAY13-18MAY13
     Route: 042
     Dates: start: 20130425
  2. IPILIMUMAB [Suspect]
     Indication: METASTATIC RENAL CELL CARCINOMA
     Dosage: THRICE IN A WEEK X 4DOSES?16MAY13-18MAY13
     Route: 042
     Dates: start: 20130425
  3. TYLENOL [Concomitant]
  4. IBUPROFEN [Concomitant]
  5. HYDROCHLOROTHIAZIDE [Concomitant]
     Dates: start: 20100201
  6. METOPROLOL [Concomitant]
     Dates: start: 20100201
  7. MAGNESIUM [Concomitant]
     Dates: start: 20120101
  8. VITAMIN C [Concomitant]
     Dates: start: 20130201

REACTIONS (5)
  - Pyrexia [Recovered/Resolved]
  - Vomiting [Recovered/Resolved]
  - Nausea [Recovered/Resolved]
  - Abdominal pain [Recovered/Resolved]
  - Diarrhoea [Recovered/Resolved]
